FAERS Safety Report 24190342 (Version 1)
Quarter: 2024Q3

REPORT INFORMATION
  Report Type: Spontaneous
  Country: US (occurrence: None)
  Receive Date: 20240807
  Receipt Date: 20240807
  Transmission Date: 20241017
  Serious: Yes (Hospitalization)
  Sender: Public
  Company Number: None

PATIENT
  Age: 65 Year
  Sex: Male
  Weight: 72.31 kg

DRUGS (6)
  1. ENVARSUS XR [Suspect]
     Active Substance: TACROLIMUS
     Indication: Lung transplant
     Dosage: 4 MG DAILY ORAL ?
     Route: 048
     Dates: start: 20240322
  2. MYCOPHENOLIC ACID [Suspect]
     Active Substance: MYCOPHENOLIC ACID
     Dosage: 1000 MG TWICE A DAY ORAL ?
     Route: 048
     Dates: start: 20240322
  3. atovaquone 750mg/5mL suspension [Concomitant]
  4. calcium + D tabs [Concomitant]
     Dates: start: 20240501
  5. cetirizine 10mg tabs [Concomitant]
     Dates: start: 20240708
  6. valganciclovir 450mg tabs [Concomitant]
     Dates: start: 20240501

REACTIONS (2)
  - Pneumonia bacterial [None]
  - Fungal skin infection [None]

NARRATIVE: CASE EVENT DATE: 20240717
